FAERS Safety Report 4540223-4 (Version None)
Quarter: 2004Q4

REPORT INFORMATION
  Report Type: 
  Country: None (occurrence: None)
  Receive Date: 20041223
  Receipt Date: 20041209
  Transmission Date: 20050328
  Serious: Yes (Hospitalization, Other)
  Sender: FDA-Public Use
  Company Number: MC200400886

PATIENT
  Sex: Female

DRUGS (2)
  1. ANGIOMAX [Suspect]
  2. ACETYLSALICYLIC ACID SRT [Concomitant]

REACTIONS (11)
  - CHEST PAIN [None]
  - CORONARY ARTERY THROMBOSIS [None]
  - ELECTROCARDIOGRAM T WAVE PEAKED [None]
  - GASTRITIS [None]
  - GASTROINTESTINAL HAEMORRHAGE [None]
  - HAEMOPTYSIS [None]
  - HYPOTENSION [None]
  - HYPOXIA [None]
  - MOUTH HAEMORRHAGE [None]
  - MYOCARDIAL INFARCTION [None]
  - RENAL FAILURE [None]
